FAERS Safety Report 19958811 (Version 1)
Quarter: 2021Q4

REPORT INFORMATION
  Report Type: Spontaneous
  Country: AR (occurrence: AR)
  Receive Date: 20211015
  Receipt Date: 20211015
  Transmission Date: 20220304
  Serious: Yes (Death)
  Sender: FDA-Public Use
  Company Number: AR-PFIZER INC-202101359848

PATIENT
  Age: 57 Year
  Sex: Male

DRUGS (2)
  1. INLYTA [Suspect]
     Active Substance: AXITINIB
     Indication: Renal cell carcinoma
     Dosage: 7 MG, DAILY
     Dates: start: 20210205
  2. AFINITOR [Concomitant]
     Active Substance: EVEROLIMUS

REACTIONS (1)
  - Death [Fatal]

NARRATIVE: CASE EVENT DATE: 20210814
